FAERS Safety Report 11722436 (Version 10)
Quarter: 2017Q1

REPORT INFORMATION
  Report Type: Spontaneous
  Country: US (occurrence: US)
  Receive Date: 20151111
  Receipt Date: 20170329
  Transmission Date: 20170428
  Serious: Yes (Congenital Anomaly, Other)
  Sender: FDA-Public Use
  Company Number: PHEH2015US022866

PATIENT
  Sex: Female

DRUGS (3)
  1. ONDANSETRON HYDROCHLORIDE. [Suspect]
     Active Substance: ONDANSETRON HYDROCHLORIDE
     Indication: FOETAL EXPOSURE DURING PREGNANCY
     Route: 064
  2. ONDANSETRON HYDROCHLORIDE. [Suspect]
     Active Substance: ONDANSETRON HYDROCHLORIDE
     Indication: FOETAL EXPOSURE DURING PREGNANCY
     Dosage: MOTHER DOSE: 8 MG, PRN
     Route: 064
  3. ZOFRAN [Suspect]
     Active Substance: ONDANSETRON HYDROCHLORIDE
     Indication: FOETAL EXPOSURE DURING PREGNANCY
     Route: 064

REACTIONS (39)
  - Heart disease congenital [Unknown]
  - Fallot^s tetralogy [Unknown]
  - Right ventricle outflow tract obstruction [Unknown]
  - Deafness unilateral [Unknown]
  - Foetal exposure during pregnancy [Unknown]
  - Decreased appetite [Unknown]
  - Fluid intake reduced [Unknown]
  - Multiple congenital abnormalities [Unknown]
  - Hypoplastic right heart syndrome [Unknown]
  - Transposition of the great vessels [Unknown]
  - Birth mark [Unknown]
  - Trisomy 21 [Unknown]
  - Atrial septal defect [Unknown]
  - Acute respiratory failure [Unknown]
  - DiGeorge^s syndrome [Unknown]
  - Emotional distress [Unknown]
  - Cerumen impaction [Unknown]
  - Stomatitis [Unknown]
  - Anhedonia [Unknown]
  - Strabismus [Unknown]
  - Pyrexia [Unknown]
  - Velo-cardio-facial syndrome [Unknown]
  - Scar [Unknown]
  - Haemangioma of skin [Unknown]
  - Rhinitis [Unknown]
  - Ventricular septal defect [Unknown]
  - Congenital hydronephrosis [Unknown]
  - Nasal congestion [Unknown]
  - Hyperbilirubinaemia [Unknown]
  - Neonatal respiratory distress syndrome [Unknown]
  - Pain [Unknown]
  - Upper respiratory tract infection [Unknown]
  - Vomiting [Unknown]
  - Congenital anomaly [Unknown]
  - Hypoplastic left heart syndrome [Unknown]
  - Congenital nystagmus [Unknown]
  - Injury [Unknown]
  - Pharyngitis [Unknown]
  - Anxiety [Unknown]
